FAERS Safety Report 14194764 (Version 1)
Quarter: 2017Q4

REPORT INFORMATION
  Report Type: Spontaneous
  Country: US (occurrence: None)
  Receive Date: 20171115
  Receipt Date: 20171115
  Transmission Date: 20180321
  Serious: Yes (Hospitalization)
  Sender: FDA-Public Use
  Company Number: None

PATIENT
  Age: 71 Year
  Sex: Female

DRUGS (8)
  1. TOBRAMYCIN. [Concomitant]
     Active Substance: TOBRAMYCIN
  2. PULMOZYME [Suspect]
     Active Substance: DORNASE ALFA
     Indication: CYSTIC FIBROSIS
     Dosage: DOSE - 2.5MG/2.5ML?ROUTE - ORAL NEBULIZER
     Route: 048
     Dates: start: 20160618
  3. ALBUTEROL. [Concomitant]
     Active Substance: ALBUTEROL
  4. RESTASIS [Concomitant]
     Active Substance: CYCLOSPORINE
  5. PREDNISONE. [Concomitant]
     Active Substance: PREDNISONE
  6. PULMOZYME [Concomitant]
     Active Substance: DORNASE ALFA
  7. IPRATROPIUM SOL 0.02%INH [Concomitant]
     Active Substance: IPRATROPIUM BROMIDE
  8. MONTELUKAST [Concomitant]
     Active Substance: MONTELUKAST SODIUM

REACTIONS (2)
  - Infection [None]
  - Drug dose omission [None]
